FAERS Safety Report 7833120-X (Version None)
Quarter: 2011Q4

REPORT INFORMATION
  Report Type: 
  Country: None (occurrence: None)
  Receive Date: 20111024
  Receipt Date: 20111018
  Transmission Date: 20120403
  Serious: Yes (Death)
  Sender: FDA-Public Use
  Company Number: FR-JNJFOC-20110510597

PATIENT
  Sex: Male
  Weight: 85 kg

DRUGS (11)
  1. ABIRATERONE ACETATE [Suspect]
     Indication: PROSTATE CANCER
     Route: 048
     Dates: start: 20110412, end: 20110508
  2. CORDARONE [Suspect]
     Indication: ARRHYTHMIA
     Route: 048
     Dates: start: 19990101, end: 20110508
  3. ABIRATERONE ACETATE [Suspect]
     Route: 048
  4. FLUINDIONE [Suspect]
     Indication: ATRIAL FIBRILLATION
     Route: 048
     Dates: start: 19990101, end: 20110508
  5. CORDARONE [Suspect]
     Indication: ATRIAL FIBRILLATION
     Route: 048
     Dates: start: 19990101, end: 20110508
  6. FLUINDIONE [Suspect]
     Indication: ARRHYTHMIA
     Route: 048
     Dates: start: 19990101, end: 20110508
  7. RAMIPRIL [Suspect]
     Indication: ATRIAL FIBRILLATION
     Dosage: THE PHYSICIAN REPORTED TWO DIFFERENT DOSES ON FU FORM : 1.25 OR 2.5
     Route: 048
     Dates: start: 19990101, end: 20110508
  8. RAMIPRIL [Suspect]
     Indication: HYPERTENSION
     Dosage: THE PHYSICIAN REPORTED TWO DIFFERENT DOSES ON FU FORM : 1.25 OR 2.5
     Route: 048
     Dates: start: 19990101, end: 20110508
  9. ALFUZOSIN HCL [Concomitant]
     Indication: BENIGN PROSTATIC HYPERPLASIA
     Route: 048
     Dates: start: 20090101, end: 20110508
  10. LASIX [Concomitant]
     Indication: HYPERTENSION
     Route: 048
     Dates: start: 19990101, end: 20110508
  11. RAMIPRIL [Suspect]
     Indication: ARRHYTHMIA
     Dosage: THE PHYSICIAN REPORTED TWO DIFFERENT DOSES ON FU FORM : 1.25 OR 2.5
     Route: 048
     Dates: start: 19990101, end: 20110508

REACTIONS (4)
  - DEATH [None]
  - PROSTATE CANCER [None]
  - GENERAL PHYSICAL HEALTH DETERIORATION [None]
  - DRUG INEFFECTIVE [None]
